FAERS Safety Report 8544114-3 (Version None)
Quarter: 2012Q3

REPORT INFORMATION
  Report Type: 
  Country: None (occurrence: None)
  Receive Date: 20120727
  Receipt Date: 20120723
  Transmission Date: 20120928
  Serious: Yes (Life-Threatening)
  Sender: FDA-Public Use
  Company Number: IT-PFIZER INC-2012178282

PATIENT
  Age: 65 Year
  Sex: Male

DRUGS (3)
  1. UNASYN [Suspect]
     Indication: URINARY TRACT INFECTION
     Dosage: 3 G, TOTAL DOSE
     Route: 042
     Dates: start: 20120629, end: 20120629
  2. HALOPERIDOL [Concomitant]
     Dosage: 2 MG, UNK
     Route: 030
     Dates: start: 20120622, end: 20120629
  3. ORUDIS [Concomitant]
     Dosage: 200 MG, UNK
     Route: 042
     Dates: start: 20120625, end: 20120629

REACTIONS (1)
  - CARDIO-RESPIRATORY ARREST [None]
